FAERS Safety Report 8339797-7 (Version None)
Quarter: 2012Q2

REPORT INFORMATION
  Report Type: 
  Country: None (occurrence: None)
  Receive Date: 20120507
  Receipt Date: 20120427
  Transmission Date: 20120825
  Serious: Yes (Hospitalization)
  Sender: FDA-Public Use
  Company Number: GB-SANOFI-AVENTIS-2012SA030179

PATIENT
  Age: 42 Year
  Sex: Female

DRUGS (12)
  1. OMEPRAZOLE [Suspect]
     Route: 065
  2. FLUCLOXACILLIN [Concomitant]
  3. GABAPENTIN [Suspect]
     Route: 065
  4. HYDROXYCHLOROQUINE [Suspect]
     Indication: RHEUMATOID ARTHRITIS
     Route: 065
  5. NYSTATIN [Concomitant]
  6. METRONIDAZOLE [Concomitant]
  7. METHOTREXATE [Suspect]
     Route: 065
  8. BENZYDAMINE [Concomitant]
  9. SCHERIPROCT [Concomitant]
  10. SULFASALAZINE [Suspect]
     Route: 065
  11. MICONAZOLE [Concomitant]
  12. VENLAFAXINE HYDROCHLORIDE [Suspect]
     Route: 065

REACTIONS (6)
  - THROMBOCYTOPENIA [None]
  - FULL BLOOD COUNT ABNORMAL [None]
  - DIARRHOEA [None]
  - ABDOMINAL PAIN [None]
  - HAEMATEMESIS [None]
  - CONTUSION [None]
